FAERS Safety Report 15196980 (Version 6)
Quarter: 2019Q3

REPORT INFORMATION
  Report Type: Spontaneous
  Country: US (occurrence: US)
  Receive Date: 20180725
  Receipt Date: 20190806
  Transmission Date: 20191004
  Serious: Yes (Life-Threatening, Other)
  Sender: FDA-Public Use
  Company Number: US-JNJFOC-20180716062

PATIENT
  Sex: Female

DRUGS (1)
  1. DURAGESIC [Suspect]
     Active Substance: FENTANYL
     Indication: PAIN MANAGEMENT
     Route: 062
     Dates: start: 2002

REACTIONS (13)
  - Seizure [Unknown]
  - Gait disturbance [Not Recovered/Not Resolved]
  - Product dose omission [Unknown]
  - Head injury [Unknown]
  - Hyperhidrosis [Not Recovered/Not Resolved]
  - Cerebral disorder [Unknown]
  - Malaise [Not Recovered/Not Resolved]
  - Exposure during pregnancy [Unknown]
  - Emergency care [Unknown]
  - Crush injury [Unknown]
  - Withdrawal syndrome [Not Recovered/Not Resolved]
  - Feeling cold [Not Recovered/Not Resolved]
  - Road traffic accident [Unknown]

NARRATIVE: CASE EVENT DATE: 2007
